FAERS Safety Report 8231518-1 (Version None)
Quarter: 2012Q1

REPORT INFORMATION
  Report Type: 
  Country: None (occurrence: None)
  Receive Date: 20120323
  Receipt Date: 20120319
  Transmission Date: 20120608
  Serious: Yes (Other)
  Sender: FDA-Public Use
  Company Number: PHEH2012US006160

PATIENT
  Sex: Female

DRUGS (7)
  1. OSTEO BI-FLEX [Concomitant]
     Dosage: UNK
  2. DIOVAN [Suspect]
     Dosage: 160 MG, QD
  3. DIOVAN [Suspect]
     Dosage: 160 MG, BID
  4. METFORMIN HCL [Concomitant]
     Dosage: UNK
  5. VITAMINS NOS [Concomitant]
     Dosage: UNK
  6. CELEBREX [Concomitant]
     Dosage: UNK
  7. VITAMIN B-12 [Concomitant]
     Dosage: UNK

REACTIONS (4)
  - ARTHRITIS [None]
  - HYPERTENSION [None]
  - DIABETES MELLITUS [None]
  - FEELING ABNORMAL [None]
